FAERS Safety Report 5720731-0 (Version None)
Quarter: 2008Q2

REPORT INFORMATION
  Report Type: 
  Country: None (occurrence: None)
  Receive Date: 20080429
  Receipt Date: 20080429
  Transmission Date: 20081010
  Serious: Yes (Other)
  Sender: FDA-Public Use
  Company Number: None

PATIENT
  Age: 76 Year
  Sex: Male
  Weight: 97 kg

DRUGS (1)
  1. HEPARIN SODIUM [Suspect]
     Indication: CAROTID ENDARTERECTOMY
     Dosage: 10,000 UNITS - 100; ONCE; IV BOLUS
     Route: 040
     Dates: start: 20080410, end: 20080410

REACTIONS (2)
  - BLOOD PRESSURE SYSTOLIC DECREASED [None]
  - HYPOTENSION [None]
